FAERS Safety Report 8788936 (Version 2)
Quarter: 2012Q4

REPORT INFORMATION
  Report Type: 
  Country: US (occurrence: US)
  Receive Date: 20120917
  Receipt Date: 20121023
  Transmission Date: 20130627
  Serious: No
  Sender: FDA-Public Use
  Company Number: US-PFIZER INC-2012225871

PATIENT
  Age: 56 Year
  Sex: Female
  Weight: 74 kg

DRUGS (5)
  1. PROTONIX [Suspect]
     Indication: GASTROOESOPHAGEAL REFLUX DISEASE
     Dosage: 40 mg, 2x/day (1)
     Route: 048
  2. ATENOLOL [Concomitant]
     Indication: HYPERTENSION
     Dosage: 25 mg, daily
  3. ATENOLOL [Concomitant]
     Dosage: 25 mg, 2x/day
  4. CRESTOR [Concomitant]
     Dosage: 40 mg, UNK
  5. ZANTAC [Concomitant]
     Dosage: 150 mg, 2x/day

REACTIONS (1)
  - Glucose tolerance impaired [Unknown]
